FAERS Safety Report 10926940 (Version 1)
Quarter: 2015Q1

REPORT INFORMATION
  Report Type: Spontaneous
  Country: CZ (occurrence: None)
  Receive Date: 20150316
  Receipt Date: 20150316
  Transmission Date: 20150721
  Serious: Yes (Hospitalization)
  Sender: FDA-Public Use
  Company Number: 8015504

PATIENT
  Age: 29 Year
  Sex: Female

DRUGS (1)
  1. THYROXIN (LEVOTHYROXINE) (LEVOTHYROXINE SODIUM) [Suspect]
     Active Substance: LEVOTHYROXINE
     Indication: HYPOTHYROIDISM

REACTIONS (5)
  - Live birth [None]
  - Dermatomyositis [None]
  - Necrotising myositis [None]
  - Maternal exposure during pregnancy [None]
  - Pneumonia aspiration [None]
